FAERS Safety Report 7931939-8 (Version None)
Quarter: 2011Q4

REPORT INFORMATION
  Report Type: 
  Country: None (occurrence: None)
  Receive Date: 20111121
  Receipt Date: 20111111
  Transmission Date: 20120403
  Serious: Yes (Hospitalization, Other)
  Sender: FDA-Public Use
  Company Number: US-ASTRAZENECA-2010SE38321

PATIENT
  Age: 86 Year
  Sex: Male
  Weight: 73.5 kg

DRUGS (11)
  1. LISINOPRIL [Concomitant]
  2. BUPROPION HCL [Concomitant]
  3. CARVEDILOL [Concomitant]
  4. NIACIN [Concomitant]
  5. ISOSORBIDE DINITRATE [Concomitant]
  6. ROPINIROLE HYDROCHLORIDE [Concomitant]
  7. SEROQUEL [Suspect]
     Indication: MENTAL DISORDER
     Route: 048
  8. TRAZODONE HCL [Suspect]
     Route: 065
  9. METFORMIN HCL [Concomitant]
  10. LOVASTATIN [Suspect]
     Route: 065
  11. LEXAPRO [Concomitant]

REACTIONS (4)
  - RENAL DISORDER [None]
  - DEMENTIA [None]
  - MALAISE [None]
  - RENAL FAILURE ACUTE [None]
